FAERS Safety Report 9566007 (Version 3)
Quarter: 2013Q4

REPORT INFORMATION
  Report Type: Spontaneous
  Country: US (occurrence: US)
  Receive Date: 20130930
  Receipt Date: 20131227
  Transmission Date: 20140711
  Serious: Yes (Hospitalization)
  Sender: FDA-Public Use
  Company Number: US-B.I. PHARMACEUTICALS,INC./RIDGEFIELD-2013-BI-29938BP

PATIENT
  Age: 51 Year
  Sex: Male
  Weight: 102.6 kg

DRUGS (9)
  1. PRADAXA [Suspect]
     Indication: ATRIAL FIBRILLATION
     Dosage: 300 MG
     Dates: start: 20110526, end: 20120312
  2. DIOVAN [Concomitant]
     Dosage: 80 MG
  3. NOVALOG [Concomitant]
  4. KCL [Concomitant]
     Dosage: 20 MEQ
  5. LASIX [Concomitant]
     Dosage: 80 MG
  6. AMIODARONE [Concomitant]
     Dosage: 20 MG
  7. COREG [Concomitant]
     Dosage: 50 MG
  8. DIGOXIN [Concomitant]
     Dosage: 0.125 MG
  9. ASPIRIN [Concomitant]

REACTIONS (2)
  - Ischaemic stroke [Unknown]
  - Haemorrhage [Unknown]
